FAERS Safety Report 9316600 (Version 1)
Quarter: 2013Q2

REPORT INFORMATION
  Report Type: Report from Study
  Country: CA (occurrence: CA)
  Receive Date: 20130530
  Receipt Date: 20130530
  Transmission Date: 20140414
  Serious: Yes (Hospitalization, Other)
  Sender: FDA-Public Use
  Company Number: CA-JNJFOC-20130518756

PATIENT
  Age: 57 Year
  Sex: Male
  Weight: 106.5 kg

DRUGS (2)
  1. REMICADE [Suspect]
     Indication: CROHN^S DISEASE
     Route: 042
     Dates: start: 20110823
  2. IBUPROFEN [Concomitant]
     Route: 065

REACTIONS (2)
  - Fall [Recovering/Resolving]
  - Ligament sprain [Recovering/Resolving]
